FAERS Safety Report 7234453-0 (Version None)
Quarter: 2011Q1

REPORT INFORMATION
  Report Type: 
  Country: None (occurrence: None)
  Receive Date: 20110119
  Receipt Date: 20110107
  Transmission Date: 20110831
  Serious: No
  Sender: FDA-Public Use
  Company Number: JP-CTI_01294_2011

PATIENT
  Sex: Female

DRUGS (6)
  1. BEPOTASTINE BESILATE [Concomitant]
     Indication: NASOPHARYNGITIS
     Dosage: DF
     Route: 048
     Dates: start: 20100606, end: 20100609
  2. TOSUFLOXACIN TOSILATE HYDRATE [Concomitant]
     Indication: NASOPHARYNGITIS
     Dosage: DF
     Route: 048
     Dates: start: 20100606, end: 20100607
  3. L-CARBOCISTEINE [Concomitant]
     Indication: NASOPHARYNGITIS
     Dosage: DF
     Route: 048
     Dates: start: 20100604, end: 20100606
  4. MEIACT MS (CEFDITOREN PIVOXIL) [Suspect]
     Indication: NASOPHARYNGITIS
     Dosage: DF
     Route: 048
     Dates: start: 20100604, end: 20100606
  5. CLOPERASTINE HYDROCHLORIDE [Concomitant]
     Indication: NASOPHARYNGITIS
     Dosage: DF
     Route: 048
     Dates: start: 20100604, end: 20100606
  6. PRANLUKAST (PRANLUKAST HYDRATE) [Suspect]
     Indication: NASOPHARYNGITIS
     Dosage: DF
     Route: 048
     Dates: start: 20100606, end: 20100609

REACTIONS (1)
  - ACUTE GENERALISED EXANTHEMATOUS PUSTULOSIS [None]
